FAERS Safety Report 13921681 (Version 2)
Quarter: 2017Q4

REPORT INFORMATION
  Report Type: Spontaneous
  Country: ID (occurrence: ID)
  Receive Date: 20170830
  Receipt Date: 20171107
  Transmission Date: 20180320
  Serious: Yes (Death, Hospitalization, Other)
  Sender: FDA-Public Use
  Company Number: ID-BAYER-2017-159998

PATIENT
  Age: 49 Year
  Sex: Male

DRUGS (3)
  1. LAMIVUDINE. [Concomitant]
     Active Substance: LAMIVUDINE
  2. NEXAVAR [Suspect]
     Active Substance: SORAFENIB
     Indication: HEPATOCELLULAR CARCINOMA
     Dosage: 200 MG, BID
     Route: 048
  3. NEXAVAR [Suspect]
     Active Substance: SORAFENIB
     Indication: HEPATITIS B

REACTIONS (10)
  - Alanine aminotransferase increased [None]
  - Metastases to bone [None]
  - Varices oesophageal [None]
  - Hepatocellular carcinoma [None]
  - Alpha 1 foetoprotein increased [None]
  - Aspartate aminotransferase increased [None]
  - Blood bilirubin increased [None]
  - Back pain [None]
  - Sepsis [Fatal]
  - Spinal compression fracture [None]
